FAERS Safety Report 8376423-5 (Version None)
Quarter: 2012Q2

REPORT INFORMATION
  Report Type: 
  Country: None (occurrence: None)
  Receive Date: 20120522
  Receipt Date: 20120521
  Transmission Date: 20120825
  Serious: Yes (Hospitalization)
  Sender: FDA-Public Use
  Company Number: PHHY2012NL040396

PATIENT
  Age: 75 Year
  Sex: Male
  Weight: 78 kg

DRUGS (6)
  1. TOBI [Suspect]
     Indication: PSEUDOMONAS INFECTION
  2. TOBI [Suspect]
     Indication: BRONCHIECTASIS
  3. LOSARTAN POTASSIUM [Concomitant]
     Dosage: 50 MG, QD
  4. SYMBICORT [Concomitant]
     Dosage: 2 DF, UNK
  5. ZITHROMAX [Concomitant]
     Dosage: 250 MG, 3 WEEKS
     Route: 048
  6. FLUTICASONE FUROATE [Concomitant]

REACTIONS (1)
  - CONDITION AGGRAVATED [None]
